FAERS Safety Report 8617871 (Version 3)
Quarter: 2012Q4

REPORT INFORMATION
  Report Type: 
  Country: US (occurrence: US)
  Receive Date: 20120615
  Receipt Date: 20120828
  Transmission Date: 20130627
  Serious: Yes (Hospitalization, Other)
  Sender: FDA-Public Use
  Company Number: US-ASTRAZENECA-2012SE38449

PATIENT
  Age: 69 Year
  Sex: Female

DRUGS (29)
  1. NEXIUM [Suspect]
     Indication: GASTROINTESTINAL HAEMORRHAGE
     Route: 048
     Dates: start: 201201
  2. NEXIUM [Suspect]
     Indication: GASTROINTESTINAL HAEMORRHAGE
     Route: 048
     Dates: start: 201204
  3. METOPROLOL [Suspect]
     Route: 048
  4. PRILOSEC [Suspect]
     Route: 048
  5. IRON [Concomitant]
  6. DIURETIC [Concomitant]
  7. PROTONIX [Concomitant]
     Route: 042
  8. ZOFRAN [Concomitant]
     Dosage: 4 TO 8 MG EVERY 6 HRS PRN
     Route: 042
  9. LANTUS [Concomitant]
     Dosage: 10 UNITS AT BEDTIME
     Route: 058
  10. ASPIRIN [Concomitant]
  11. STOOL SOFTER [Concomitant]
     Dosage: 3 AT BEDTIME
  12. FIBER [Concomitant]
     Dosage: 4 AT BEDTIME
  13. VINEGAR [Concomitant]
     Dosage: 1 DAILY
  14. CALCIUM WITH VITAMIN D [Concomitant]
     Dosage: 100 MG, TWICE DAILY
  15. B-12 INJECTION [Concomitant]
  16. METFORMIN [Concomitant]
     Dosage: 1 G BEFORE BREAKFAST AND SUPPER AND 500 MG BEFORE LUNCH
  17. GLIPIZIDE [Concomitant]
     Dosage: 10 MG BEFORE BREAKFAST
  18. PLAVIX [Concomitant]
     Dosage: 75 MG QAM
  19. SYNTHROID [Concomitant]
     Dosage: 75 MCG, 1 QAM
  20. QUINAPRIL [Concomitant]
  21. ZOCOR [Concomitant]
  22. TRAMADOL [Concomitant]
  23. HYDROCHLOROTHIAZIDE [Concomitant]
  24. PHENERGAN [Concomitant]
     Indication: NAUSEA
     Dosage: 25 MG, 1 EVERY 6 HRS. PRN
  25. BACLOFEN [Concomitant]
  26. GABAPENTIN [Concomitant]
     Dosage: 100 MG TWICE DAILY AND 200 MG AT BEDTIME
  27. FERROUS SULFATE [Concomitant]
  28. REGLAN [Concomitant]
     Dosage: 5MG EVERY 6 HRS TO 10 MG DAILY
  29. NEURONTIN [Concomitant]

REACTIONS (46)
  - Gastrointestinal haemorrhage [Recovered/Resolved]
  - Faeces discoloured [Unknown]
  - Decreased appetite [Unknown]
  - Melaena [Unknown]
  - Rectal haemorrhage [Unknown]
  - Haemorrhage [Unknown]
  - Haematemesis [Unknown]
  - Aortic aneurysm [Unknown]
  - Pleural effusion [Unknown]
  - Gallbladder disorder [Unknown]
  - Arteriosclerosis [Unknown]
  - Colitis ischaemic [Unknown]
  - Abdominal pain [Recovering/Resolving]
  - Nausea [Recovering/Resolving]
  - Vomiting [Unknown]
  - Gastritis [Unknown]
  - Impaired gastric emptying [Unknown]
  - Hepatic steatosis [Unknown]
  - Spinal osteoarthritis [Unknown]
  - Diabetic neuropathy [Unknown]
  - Hypertension [Unknown]
  - Hypothyroidism [Unknown]
  - Hypotension [Unknown]
  - Anaemia [Unknown]
  - Back pain [Unknown]
  - Dyspepsia [Unknown]
  - Pain in extremity [Unknown]
  - Oropharyngeal pain [Unknown]
  - Epistaxis [Unknown]
  - Pyrexia [Recovered/Resolved]
  - Pain in extremity [Unknown]
  - Chest pain [Recovered/Resolved]
  - Dyspnoea [Recovering/Resolving]
  - Dysuria [Unknown]
  - Biliary tract disorder [Unknown]
  - Renal cyst [Unknown]
  - Dyspepsia [Unknown]
  - Haematochezia [Unknown]
  - Gastritis atrophic [Unknown]
  - Oesophageal disorder [Unknown]
  - Tachycardia [Unknown]
  - Abdominal pain upper [Unknown]
  - Abdominal pain lower [Unknown]
  - Headache [Unknown]
  - Off label use [Unknown]
  - Drug dose omission [Unknown]
